FAERS Safety Report 7310696-2 (Version None)
Quarter: 2011Q1

REPORT INFORMATION
  Report Type: 
  Country: None (occurrence: None)
  Receive Date: 20110224
  Receipt Date: 20110217
  Transmission Date: 20110831
  Serious: Yes (Life-Threatening, Hospitalization, Other)
  Sender: FDA-Public Use
  Company Number: CA-SANOFI-AVENTIS-2011SA001810

PATIENT
  Age: 47 Year
  Sex: Male
  Weight: 61.2 kg

DRUGS (12)
  1. ELOXATIN [Suspect]
     Dosage: 144 MG
     Route: 041
     Dates: start: 20101214, end: 20101214
  2. CALCIUM/MAGNESIUM [Concomitant]
     Indication: PROPHYLAXIS
  3. METFORMIN HCL [Concomitant]
  4. INVESTIGATIONAL DRUG [Suspect]
     Dosage: 900 MG
     Route: 042
     Dates: start: 20101214
  5. 5-FU [Suspect]
     Dosage: 676 MG
     Route: 042
     Dates: start: 20101214, end: 20101214
  6. GLICLAZIDE [Concomitant]
  7. FOLINIC ACID [Suspect]
     Dosage: 676 MG
     Route: 042
     Dates: start: 20101214, end: 20101214
  8. PARIET [Concomitant]
  9. RABEPRAZOLE SODIUM [Concomitant]
  10. 5-FU [Suspect]
     Dosage: 4056 MG
     Route: 042
     Dates: start: 20101216
  11. DIPHENHYDRAMINE [Concomitant]
     Indication: COUGH
  12. DIAMICRON [Concomitant]
     Dates: start: 20101206

REACTIONS (4)
  - VOMITING [None]
  - DEHYDRATION [None]
  - DIABETIC KETOACIDOSIS [None]
  - NAUSEA [None]
